FAERS Safety Report 5020070-X (Version None)
Quarter: 2006Q2

REPORT INFORMATION
  Report Type: 
  Country: None (occurrence: None)
  Receive Date: 20060607
  Receipt Date: 20060530
  Transmission Date: 20061013
  Serious: Yes (Death)
  Sender: FDA-Public Use
  Company Number: JP-JPN-A200601807

PATIENT
  Age: 75 Year
  Sex: Female

DRUGS (3)
  1. VALTREX [Suspect]
     Indication: HERPES ZOSTER
     Dosage: 1000MG VARIABLE DOSE
     Route: 048
     Dates: start: 20060518, end: 20060525
  2. FLUTIDE [Concomitant]
     Indication: ASTHMA
     Route: 055
  3. DECADRON [Concomitant]
     Indication: ASTHMA
     Route: 065

REACTIONS (3)
  - ASTHENIA [None]
  - DEATH [None]
  - DEPRESSED LEVEL OF CONSCIOUSNESS [None]
